FAERS Safety Report 5237712-6 (Version None)
Quarter: 2007Q1

REPORT INFORMATION
  Report Type: 
  Country: None (occurrence: None)
  Receive Date: 20070214
  Receipt Date: 20070205
  Transmission Date: 20070707
  Serious: Yes (Hospitalization)
  Sender: FDA-Public Use
  Company Number: 2007PK00234

PATIENT
  Age: 57 Year
  Sex: Male
  Weight: 78 kg

DRUGS (4)
  1. METOPROLOL SUCCINATE [Suspect]
  2. METOPROLOL SUCCINATE [Suspect]
  3. MIMPARA [Suspect]
  4. DIGITOXIN TAB [Concomitant]

REACTIONS (3)
  - BRADYARRHYTHMIA [None]
  - BUNDLE BRANCH BLOCK RIGHT [None]
  - DRUG INTERACTION [None]
